FAERS Safety Report 7976350-9 (Version None)
Quarter: 2011Q4

REPORT INFORMATION
  Report Type: 
  Country: None (occurrence: None)
  Receive Date: 20111213
  Receipt Date: 20111018
  Transmission Date: 20120403
  Serious: No
  Sender: FDA-Public Use
  Company Number: US-AMGEN-USASP2011053782

PATIENT
  Sex: Female

DRUGS (2)
  1. HUMIRA [Concomitant]
     Dosage: UNK
  2. ENBREL [Suspect]
     Indication: RHEUMATOID ARTHRITIS
     Dosage: UNK
     Dates: start: 19990101

REACTIONS (2)
  - ARTHRITIS [None]
  - INCORRECT DOSE ADMINISTERED [None]
